FAERS Safety Report 8585172-X (Version None)
Quarter: 2012Q3

REPORT INFORMATION
  Report Type: 
  Country: None (occurrence: None)
  Receive Date: 20120810
  Receipt Date: 20120806
  Transmission Date: 20120928
  Serious: Yes (Hospitalization)
  Sender: FDA-Public Use
  Company Number: PHHY2012CH067563

PATIENT
  Sex: Female

DRUGS (1)
  1. SANDOSTATIN [Suspect]
     Indication: MENINGIOMA MALIGNANT
     Dosage: 0.1 MG THREE TIMES DAILY
     Route: 058

REACTIONS (3)
  - PARAESTHESIA [None]
  - CENTRAL NERVOUS SYSTEM INFLAMMATION [None]
  - DEMYELINATION [None]
